FAERS Safety Report 5616165-X (Version None)
Quarter: 2008Q1

REPORT INFORMATION
  Report Type: 
  Country: None (occurrence: None)
  Receive Date: 20080201
  Receipt Date: 20080116
  Transmission Date: 20080703
  Serious: Yes (Other)
  Sender: FDA-Public Use
  Company Number: 2005JP002099

PATIENT
  Age: 4 Year
  Sex: Male
  Weight: 217 kg

DRUGS (3)
  1. PROTOPIC [Suspect]
     Indication: DERMATITIS ATOPIC
     Dosage: 0.03%, TOPICAL
     Route: 061
     Dates: start: 20041210, end: 20050305
  2. PROTOPIC [Suspect]
     Indication: DERMATITIS ATOPIC
     Dosage: 0.03%, TOPICAL
     Route: 061
     Dates: start: 20050101
  3. KINDAVATE(CLOBETASONE BUTYRATE) OINTMENT [Suspect]
     Indication: DERMATITIS ATOPIC
     Dosage: 0.17 G, /D, TOPICAL
     Route: 061
     Dates: start: 20041210

REACTIONS (3)
  - APPLICATION SITE REACTION [None]
  - IMPETIGO [None]
  - KAPOSI'S VARICELLIFORM ERUPTION [None]
